FAERS Safety Report 25856661 (Version 1)
Quarter: 2025Q3

REPORT INFORMATION
  Report Type: Spontaneous
  Country: EU (occurrence: EU)
  Receive Date: 20250929
  Receipt Date: 20250929
  Transmission Date: 20251021
  Serious: Yes (Life-Threatening, Hospitalization, Disabling)
  Sender: MACLEODS
  Company Number: EU-MLMSERVICE-20250909-PI635915-00145-1

PATIENT

DRUGS (5)
  1. LIDOCAINE [Suspect]
     Active Substance: LIDOCAINE
     Indication: Epidural analgesia
     Route: 008
  2. FENTANYL [Suspect]
     Active Substance: FENTANYL
     Indication: Epidural analgesia
     Route: 008
  3. LEVOBUPIVACAINE [Suspect]
     Active Substance: LEVOBUPIVACAINE
     Indication: Epidural analgesia
     Route: 008
  4. EPINEPHRINE [Concomitant]
     Active Substance: EPINEPHRINE
     Indication: Product used for unknown indication
     Route: 008
  5. SALINE [Concomitant]
     Active Substance: SODIUM CHLORIDE
     Indication: Product used for unknown indication
     Route: 065

REACTIONS (6)
  - Spinal shock [Recovered/Resolved]
  - Brain stem stroke [Recovering/Resolving]
  - Ischaemic stroke [Recovering/Resolving]
  - Hypotension [Recovered/Resolved]
  - Administration site extravasation [Recovering/Resolving]
  - Maternal exposure during pregnancy [Unknown]
